FAERS Safety Report 4515406-X (Version None)
Quarter: 2004Q4

REPORT INFORMATION
  Report Type: 
  Country: None (occurrence: None)
  Receive Date: 20041116
  Receipt Date: 20041117
  Transmission Date: 20050328
  Serious: Yes (Other)
  Sender: FDA-Public Use
  Company Number: 2004-11-1149

PATIENT
  Sex: Female

DRUGS (2)
  1. INTRON A [Suspect]
     Dosage: 5 MIUMWF
  2. ADRIAMYCIN PFS [Suspect]

REACTIONS (2)
  - CARDIOMYOPATHY [None]
  - CARDIOTOXICITY [None]
